FAERS Safety Report 4588103-2 (Version None)
Quarter: 2005Q1

REPORT INFORMATION
  Report Type: 
  Country: None (occurrence: None)
  Receive Date: 20050216
  Receipt Date: 20050202
  Transmission Date: 20050727
  Serious: Yes (Death, Life-Threatening)
  Sender: FDA-Public Use
  Company Number: JP_050205807

PATIENT
  Age: 62 Year
  Sex: Female
  Weight: 53 kg

DRUGS (10)
  1. ONCOVIN [Suspect]
     Indication: ACUTE LYMPHOCYTIC LEUKAEMIA
     Dosage: 2 MG OTHER
     Route: 042
     Dates: start: 20030206, end: 20030618
  2. CYCLOPHOSPHAMIDE [Concomitant]
  3. DAUNOMYCIN [Concomitant]
  4. LEUNASE      (ASPARAGINASE) [Concomitant]
  5. ADRIACIAN           (DOXORUBICIN HYDROCHLORIDE) [Concomitant]
  6. METHOTREXATE [Concomitant]
  7. CYTARABINE [Concomitant]
  8. VEPESID [Concomitant]
  9. MERCAPTOPURINE [Concomitant]
  10. NOVANTRONE [Concomitant]

REACTIONS (2)
  - ACUTE MYELOID LEUKAEMIA [None]
  - PNEUMONIA [None]
